FAERS Safety Report 20602241 (Version 1)
Quarter: 2022Q1

REPORT INFORMATION
  Report Type: Spontaneous
  Country: US (occurrence: None)
  Receive Date: 20220315
  Receipt Date: 20220315
  Transmission Date: 20220424
  Serious: Yes (unspecified)
  Sender: FDA-Public Use
  Company Number: None

PATIENT
  Age: 8 Year
  Sex: Male

DRUGS (2)
  1. ONDANSETRON [Suspect]
     Active Substance: ONDANSETRON
     Indication: Diarrhoea
     Dosage: OTHER QUANTITY : 1 TABLET(S);?OTHER FREQUENCY : 1;?
     Route: 060
     Dates: start: 20220314, end: 20220314
  2. ONDANSETRON [Suspect]
     Active Substance: ONDANSETRON
     Indication: Vomiting

REACTIONS (5)
  - Rash [None]
  - Oxygen saturation decreased [None]
  - Pruritus [None]
  - Lethargy [None]
  - Fatigue [None]

NARRATIVE: CASE EVENT DATE: 20220314
